FAERS Safety Report 16222467 (Version 1)
Quarter: 2019Q2

REPORT INFORMATION
  Report Type: Spontaneous
  Country: US (occurrence: US)
  Receive Date: 20190422
  Receipt Date: 20190422
  Transmission Date: 20190711
  Serious: No
  Sender: FDA-Public Use
  Company Number: US-JNJFOC-20190338361

PATIENT
  Age: 32 Year
  Sex: Female
  Weight: 54.43 kg

DRUGS (1)
  1. TYLENOL EXTRA STRENGTH [Suspect]
     Active Substance: ACETAMINOPHEN
     Indication: HEADACHE
     Route: 048
     Dates: start: 20190323

REACTIONS (5)
  - Oral pain [Not Recovered/Not Resolved]
  - Incorrect dose administered [Unknown]
  - Adverse event [Recovered/Resolved]
  - Dysphagia [Recovered/Resolved]
  - Product physical issue [Unknown]

NARRATIVE: CASE EVENT DATE: 20190323
